FAERS Safety Report 17562693 (Version 1)
Quarter: 2020Q1

REPORT INFORMATION
  Report Type: Spontaneous
  Country: US (occurrence: US)
  Receive Date: 20200319
  Receipt Date: 20200319
  Transmission Date: 20200409
  Serious: Yes (Hospitalization)
  Sender: FDA-Public Use
  Company Number: US-OTSUKA-2020_007433

PATIENT
  Sex: Female

DRUGS (2)
  1. SAMSCA [Suspect]
     Active Substance: TOLVAPTAN
     Indication: BLOOD OSMOLARITY DECREASED
  2. SAMSCA [Suspect]
     Active Substance: TOLVAPTAN
     Indication: HYPONATRAEMIA
     Dosage: 15 MG, BIW
     Route: 048

REACTIONS (5)
  - Blood sodium decreased [Unknown]
  - Inappropriate schedule of product administration [Unknown]
  - Blood sodium decreased [Recovered/Resolved]
  - Pneumonia [Unknown]
  - Product use in unapproved indication [Unknown]
